FAERS Safety Report 22068667 (Version 2)
Quarter: 2024Q2

REPORT INFORMATION
  Report Type: Spontaneous
  Country: GB (occurrence: GB)
  Receive Date: 20230307
  Receipt Date: 20240618
  Transmission Date: 20240716
  Serious: Yes (Death, Other)
  Sender: FDA-Public Use
  Company Number: GB-EXELIXIS-CABO-23059596

PATIENT
  Age: 17 Year
  Sex: Female
  Weight: 63 kg

DRUGS (6)
  1. CABOMETYX [Suspect]
     Active Substance: CABOZANTINIB S-MALATE
     Indication: Osteosarcoma metastatic
     Dosage: 60 MG, QD
     Route: 048
     Dates: start: 20221228
  2. CABOMETYX [Suspect]
     Active Substance: CABOZANTINIB S-MALATE
     Indication: Off label use
     Dosage: 60 MG, QOD
     Route: 048
     Dates: start: 20230301
  3. DOCUSATE SODIUM [Concomitant]
     Active Substance: DOCUSATE SODIUM
     Dosage: TAKE 2 CAPSULE (200 MG) TOTAL BY MOUTH 3 TID.
     Route: 048
  4. NALOXEGOL [Concomitant]
     Active Substance: NALOXEGOL
     Dosage: TAKE ONE TABLET (12.5 MG) BY MOUTH ONCE EACH DAY.
     Route: 048
  5. OMEPRAZOLE [Concomitant]
     Active Substance: DONEPEZIL HYDROCHLORIDE\OMEPRAZOLE\OMEPRAZOLE MAGNESIUM
     Dosage: TAKE (20 MG) BY MOUTH ONCE EACH DAY. DO NOT CRUSH OR CHEW
     Route: 048
  6. SENNOSIDES [Concomitant]
     Active Substance: SENNOSIDES
     Dosage: TAKE 2 TABLETS (15 MG TOTAL) BY MOUTH ONCE EACH DAY AT BEDTIME.
     Route: 048

REACTIONS (18)
  - Malignant neoplasm progression [Fatal]
  - Myalgia [Not Recovered/Not Resolved]
  - Vomiting [Unknown]
  - Wheezing [Unknown]
  - Erythema [Unknown]
  - Malaise [Unknown]
  - Body temperature increased [Unknown]
  - Back pain [Not Recovered/Not Resolved]
  - Pyrexia [Unknown]
  - Fatigue [Unknown]
  - Decreased appetite [Unknown]
  - Nausea [Unknown]
  - Pain in extremity [Not Recovered/Not Resolved]
  - Cough [Not Recovered/Not Resolved]
  - Dyspnoea [Unknown]
  - Inappropriate schedule of product administration [Unknown]
  - Product prescribing issue [Unknown]
  - Off label use [Unknown]

NARRATIVE: CASE EVENT DATE: 20221228
